FAERS Safety Report 5099431-9 (Version None)
Quarter: 2006Q3

REPORT INFORMATION
  Report Type: 
  Country: None (occurrence: None)
  Receive Date: 20060905
  Receipt Date: 20060905
  Transmission Date: 20061208
  Serious: Yes (Hospitalization)
  Sender: FDA-Public Use
  Company Number: None

PATIENT
  Age: 32 Year
  Sex: Male
  Weight: 113.7 kg

DRUGS (12)
  1. REMICIDE INJECTION [Suspect]
     Indication: CROHN'S DISEASE
     Dosage: 550 MG IV INFUSED AT 154 ML/HOUR
     Route: 042
     Dates: start: 20060818
  2. MECAPTOPURINE [Concomitant]
  3. MESALANINE [Concomitant]
  4. HYOSCYAMINE [Concomitant]
  5. OMEPRAZOLE [Concomitant]
  6. GABAPENTIN [Concomitant]
  7. IRON [Concomitant]
  8. B12 [Concomitant]
  9. PERCOCET [Concomitant]
  10. VICODIN [Concomitant]
  11. METHOCARBAMOL [Concomitant]
  12. CHOLESTYRAMINE [Concomitant]

REACTIONS (7)
  - ATRIAL FIBRILLATION [None]
  - CHEST PAIN [None]
  - DYSPNOEA [None]
  - HEART RATE INCREASED [None]
  - HYPOTENSION [None]
  - INFUSION RELATED REACTION [None]
  - THROAT TIGHTNESS [None]
